FAERS Safety Report 4737421-3 (Version None)
Quarter: 2005Q3

REPORT INFORMATION
  Report Type: 
  Country: None (occurrence: None)
  Receive Date: 20050805
  Receipt Date: 20050725
  Transmission Date: 20060218
  Serious: No
  Sender: FDA-Public Use
  Company Number: 27020

PATIENT
  Age: 44 Year
  Sex: Male

DRUGS (5)
  1. ALDARA [Suspect]
     Indication: ACTINIC KERATOSIS
     Dosage: (3 IN 1 WEEK(S), TOPICAL
     Route: 061
     Dates: start: 20050705, end: 20050718
  2. RETIN-A [Suspect]
     Dosage: TOPICAL
     Route: 061
     Dates: start: 20050705, end: 20050716
  3. SYNTHROID [Concomitant]
  4. MOTRIN [Concomitant]
  5. TYLENOL (CAPLET) [Concomitant]

REACTIONS (7)
  - APPLICATION SITE REACTION [None]
  - NIPPLE PAIN [None]
  - RASH GENERALISED [None]
  - RASH MACULO-PAPULAR [None]
  - RASH PRURITIC [None]
  - THROAT TIGHTNESS [None]
  - URTICARIA [None]
